FAERS Safety Report 5882648-0 (Version None)
Quarter: 2008Q3

REPORT INFORMATION
  Report Type: 
  Country: None (occurrence: None)
  Receive Date: 20080913
  Receipt Date: 20080811
  Transmission Date: 20090109
  Serious: No
  Sender: FDA-Public Use
  Company Number: US-ABBOTT-08P-163-0470363-00

PATIENT
  Sex: Male
  Weight: 86.26 kg

DRUGS (12)
  1. HUMIRA [Suspect]
     Indication: RHEUMATOID ARTHRITIS
     Route: 058
     Dates: start: 20080501
  2. CYCLOBENZAPRINE HCL [Concomitant]
     Indication: PAIN
     Route: 048
     Dates: start: 20080701
  3. HYDROXYCHLOROQUINE [Concomitant]
     Indication: PAIN
     Route: 048
     Dates: start: 20040101
  4. PAROXETINE HCL [Concomitant]
     Indication: DEPRESSION
     Route: 048
     Dates: start: 20060101
  5. GABAPENTIN [Concomitant]
     Indication: PAIN
     Route: 048
     Dates: start: 20060101
  6. TESTOSTERONE [Concomitant]
     Indication: OSTEOPOROSIS
     Route: 050
  7. PREDNISONE TAB [Concomitant]
     Indication: RHEUMATOID ARTHRITIS
     Route: 048
     Dates: start: 20080401, end: 20080601
  8. PREDNISONE TAB [Concomitant]
     Route: 048
     Dates: start: 20080601
  9. PREDNISONE TAB [Concomitant]
     Route: 048
     Dates: start: 20080810, end: 20080810
  10. ETODOLAC [Concomitant]
     Indication: RHEUMATOID ARTHRITIS
     Route: 048
     Dates: start: 20050101
  11. HYDROCODONE BITARTRATE [Concomitant]
     Indication: RHEUMATOID ARTHRITIS
     Route: 048
     Dates: start: 20040101
  12. MORPHINE [Concomitant]
     Indication: PAIN
     Route: 048
     Dates: start: 20070101

REACTIONS (7)
  - GINGIVAL PAIN [None]
  - GLOSSODYNIA [None]
  - NIGHT SWEATS [None]
  - RASH MACULAR [None]
  - RASH PRURITIC [None]
  - SWOLLEN TONGUE [None]
  - WHITE BLOOD CELL COUNT INCREASED [None]
